FAERS Safety Report 4423881-4 (Version None)
Quarter: 2004Q3

REPORT INFORMATION
  Report Type: 
  Country: None (occurrence: None)
  Receive Date: 20040715
  Receipt Date: 20040126
  Transmission Date: 20050211
  Serious: Yes (Death)
  Sender: FDA-Public Use
  Company Number: 2004196045US

PATIENT
  Sex: Male

DRUGS (3)
  1. CELEBREX [Suspect]
     Dosage: 400 MG, ORAL
     Route: 048
  2. PREDNISONE [Concomitant]
  3. PROTON PUMP INHIBITOR [Concomitant]

REACTIONS (1)
  - GASTROINTESTINAL HAEMORRHAGE [None]
